FAERS Safety Report 9742035 (Version 1)
Quarter: 2013Q4

REPORT INFORMATION
  Report Type: Spontaneous
  Country: MX (occurrence: MX)
  Receive Date: 20131210
  Receipt Date: 20131210
  Transmission Date: 20140711
  Serious: Yes (Other)
  Sender: FDA-Public Use
  Company Number: PHHY2013MX139115

PATIENT
  Age: 18 Year
  Sex: Female

DRUGS (4)
  1. METOPROLOL [Suspect]
     Indication: HYPERTENSION
  2. TELMISARTAN [Suspect]
     Indication: HYPERTENSION
  3. PRAZOSIN [Suspect]
     Indication: HYPERTENSION
  4. NIFEDIPINE [Suspect]
     Indication: HYPERTENSION

REACTIONS (7)
  - Hemiplegia [Unknown]
  - Hypertensive crisis [Recovering/Resolving]
  - Chest pain [Unknown]
  - Hypertension [Recovering/Resolving]
  - Blood testosterone increased [Recovered/Resolved]
  - Blood androstenedione increased [Recovered/Resolved]
  - Dehydroepiandrosterone decreased [Recovered/Resolved]
